FAERS Safety Report 12681520 (Version 1)
Quarter: 2016Q3

REPORT INFORMATION
  Report Type: Spontaneous
  Country: CN (occurrence: CN)
  Receive Date: 20160824
  Receipt Date: 20160824
  Transmission Date: 20161109
  Serious: Yes (Other)
  Sender: FDA-Public Use
  Company Number: CN-TAKEDA-2016MPI007423

PATIENT

DRUGS (2)
  1. DEXAMETHASONE. [Suspect]
     Active Substance: DEXAMETHASONE
     Indication: AMYLOIDOSIS
     Dosage: UNK
     Route: 041
  2. VELCADE [Suspect]
     Active Substance: BORTEZOMIB
     Indication: AMYLOIDOSIS
     Dosage: 1.3 MG/M2, UNK
     Route: 042

REACTIONS (17)
  - Lung infection [Unknown]
  - Shock [Unknown]
  - Pyrexia [Unknown]
  - Herpes zoster [Unknown]
  - Amyloidosis [Unknown]
  - Off label use [Unknown]
  - Arrhythmia [Unknown]
  - Vision blurred [Unknown]
  - Drug ineffective for unapproved indication [Unknown]
  - Vomiting [Unknown]
  - Constipation [Unknown]
  - Product use issue [Unknown]
  - Bone marrow failure [Unknown]
  - Renal failure [Unknown]
  - Hypoaesthesia [Unknown]
  - Diarrhoea [Unknown]
  - Nausea [Unknown]
